FAERS Safety Report 7827286-5 (Version None)
Quarter: 2011Q4

REPORT INFORMATION
  Report Type: 
  Country: None (occurrence: None)
  Receive Date: 20111020
  Receipt Date: 20111012
  Transmission Date: 20120403
  Serious: Yes (Hospitalization)
  Sender: FDA-Public Use
  Company Number: NO-PFIZER INC-2011250529

PATIENT
  Age: 66 Year
  Sex: Male

DRUGS (7)
  1. CORDARONE [Suspect]
     Indication: ATRIAL FIBRILLATION
     Dosage: 200 MG, 2X/DAY
     Route: 048
     Dates: start: 20110318, end: 20110402
  2. VALSARTAN [Concomitant]
     Dosage: UNK
     Dates: start: 20080101
  3. ACETAMINOPHEN [Concomitant]
     Dosage: UNK
     Dates: start: 20110316
  4. PARALGIN FORTE [Concomitant]
     Dosage: UNK
     Dates: start: 20110316
  5. ASPIRIN [Concomitant]
     Dosage: UNK
     Dates: start: 20100824
  6. LIPITOR [Concomitant]
     Dosage: UNK
     Dates: start: 20100824
  7. METOPROLOL [Concomitant]
     Dosage: UNK
     Dates: start: 20100824

REACTIONS (3)
  - BRADYCARDIA [None]
  - ATELECTASIS [None]
  - PLEURAL EFFUSION [None]
